FAERS Safety Report 19594113 (Version 4)
Quarter: 2022Q1

REPORT INFORMATION
  Report Type: Spontaneous
  Country: JP (occurrence: JP)
  Receive Date: 20210722
  Receipt Date: 20220307
  Transmission Date: 20220423
  Serious: Yes (Hospitalization, Other)
  Sender: FDA-Public Use
  Company Number: JP-TAKEDA-2021TJP058740

PATIENT
  Sex: Female
  Weight: 34 kg

DRUGS (4)
  1. ZEJULA [Suspect]
     Active Substance: NIRAPARIB
     Indication: Ovarian cancer recurrent
     Dosage: 200 MILLIGRAM, QD
     Route: 048
     Dates: start: 20210622, end: 202107
  2. FERROUS CITRATE NA TABLET [Concomitant]
     Indication: Iron deficiency anaemia
     Dosage: 100 MILLIGRAM, BID
     Route: 048
     Dates: start: 20201013, end: 20210716
  3. OLMESARTAN MEDOXOMIL [Concomitant]
     Active Substance: OLMESARTAN MEDOXOMIL
     Indication: Hypertension
     Dosage: 20 MILLIGRAM, QD
     Route: 048
     Dates: start: 20201020, end: 20210728
  4. ROSUVASTATIN OD [Concomitant]
     Indication: Hyperlipidaemia
     Dosage: 5 MILLIGRAM, QD
     Route: 048
     Dates: start: 20190917, end: 20210728

REACTIONS (3)
  - Limbic encephalitis [Recovered/Resolved with Sequelae]
  - Organic brain syndrome [Unknown]
  - Hyponatraemia [Recovered/Resolved]

NARRATIVE: CASE EVENT DATE: 20210703
